FAERS Safety Report 14706968 (Version 2)
Quarter: 2018Q3

REPORT INFORMATION
  Report Type: Report from Study
  Country: DE (occurrence: DE)
  Receive Date: 20180403
  Receipt Date: 20180718
  Transmission Date: 20181010
  Serious: Yes (Hospitalization)
  Sender: FDA-Public Use
  Company Number: DE-TEVA-2018-DE-876856

PATIENT
  Age: 77 Year
  Sex: Male
  Weight: 97 kg

DRUGS (21)
  1. DEKRISTOL [Concomitant]
     Active Substance: CHOLECALCIFEROL
     Indication: VITAMIN D DEFICIENCY
     Dosage: 20000 IU (INTERNATIONAL UNIT) DAILY;
     Route: 048
     Dates: start: 20170727, end: 20170821
  2. ZOMETA [Concomitant]
     Active Substance: ZOLEDRONIC ACID
     Indication: PROPHYLAXIS
     Route: 041
     Dates: start: 20170623
  3. NEPHROTRANS [Concomitant]
     Active Substance: SODIUM BICARBONATE
     Indication: CHRONIC KIDNEY DISEASE
     Dosage: 500 MILLIGRAM DAILY;
     Route: 048
     Dates: start: 20170727
  4. CANDESARTAN. [Concomitant]
     Active Substance: CANDESARTAN
     Indication: HYPERTENSION
     Dosage: 16 MILLIGRAM DAILY;
     Route: 048
     Dates: start: 20170621
  5. DEXAMETHASONE. [Suspect]
     Active Substance: DEXAMETHASONE
     Route: 065
     Dates: start: 20170614, end: 20170705
  6. REVLIMID [Suspect]
     Active Substance: LENALIDOMIDE
     Route: 048
     Dates: start: 20170712, end: 20170801
  7. LERCANIDIPIN [Concomitant]
     Active Substance: LERCANIDIPINE
     Indication: HYPERTENSION
     Dosage: 5 MILLIGRAM DAILY;
     Route: 048
  8. FRAGMIN P [Concomitant]
     Active Substance: DALTEPARIN SODIUM
     Indication: PROPHYLAXIS
     Dosage: 2500 IU (INTERNATIONAL UNIT) DAILY;
     Route: 058
     Dates: start: 20170620
  9. REPAGLINID [Concomitant]
     Active Substance: REPAGLINIDE
     Indication: TYPE 2 DIABETES MELLITUS
     Dosage: 3 MILLIGRAM DAILY;
     Route: 048
     Dates: start: 2010
  10. ALBUNORM [Concomitant]
     Active Substance: ALBUMIN HUMAN
     Indication: CHRONIC KIDNEY DISEASE
     Route: 041
     Dates: start: 20170710
  11. DEXAMETHASONE. [Suspect]
     Active Substance: DEXAMETHASONE
     Route: 065
     Dates: start: 20170906, end: 20170927
  12. CALCIUMGLUCONAT [Concomitant]
     Indication: CHRONIC KIDNEY DISEASE
     Route: 041
     Dates: start: 20170711
  13. REVLIMID [Suspect]
     Active Substance: LENALIDOMIDE
     Route: 048
     Dates: start: 20170614, end: 20170704
  14. NIFEDIPIN [Concomitant]
     Active Substance: NIFEDIPINE
     Indication: HYPERTENSION
     Route: 048
     Dates: start: 2010, end: 2017
  15. CLOPIDOGREL RATIOPHARM [Concomitant]
     Indication: PROPHYLAXIS
     Dosage: 75 MILLIGRAM DAILY;
     Route: 048
     Dates: start: 201705
  16. DEXAMETHASONE. [Suspect]
     Active Substance: DEXAMETHASONE
     Indication: PLASMA CELL MYELOMA
     Route: 065
     Dates: end: 20170920
  17. REVLIMID [Suspect]
     Active Substance: LENALIDOMIDE
     Route: 048
     Dates: start: 20170906, end: 20170925
  18. RAMIPRIL. [Concomitant]
     Active Substance: RAMIPRIL
     Indication: CHRONIC KIDNEY DISEASE
     Dosage: 2.5 MILLIGRAM DAILY;
     Route: 048
     Dates: start: 20170727, end: 20170821
  19. DEXAMETHASONE. [Suspect]
     Active Substance: DEXAMETHASONE
     Route: 065
     Dates: start: 20170712, end: 20170802
  20. REVLIMID [Suspect]
     Active Substance: LENALIDOMIDE
     Indication: PLASMA CELL MYELOMA
     Route: 048
     Dates: start: 20170809, end: 20170829
  21. ALLOPURINOL. [Concomitant]
     Active Substance: ALLOPURINOL
     Indication: HYPERURICAEMIA
     Dosage: 150 MILLIGRAM DAILY;
     Route: 048
     Dates: start: 201707

REACTIONS (1)
  - Intestinal ischaemia [Recovered/Resolved]

NARRATIVE: CASE EVENT DATE: 20170925
